FAERS Safety Report 8389772-1 (Version None)
Quarter: 2012Q2

REPORT INFORMATION
  Report Type: 
  Country: None (occurrence: None)
  Receive Date: 20120524
  Receipt Date: 20120524
  Transmission Date: 20120825
  Serious: Yes (Hospitalization)
  Sender: FDA-Public Use
  Company Number: None

PATIENT
  Sex: Female
  Weight: 89 kg

DRUGS (2)
  1. TAXOTERE [Suspect]
     Dosage: 464 MG
  2. DOXORUBICIN HYDROCHLORIDE [Suspect]
     Dosage: 464 MG

REACTIONS (4)
  - TREATMENT RELATED SECONDARY MALIGNANCY [None]
  - BLOOD ALBUMIN DECREASED [None]
  - ACUTE MONOCYTIC LEUKAEMIA [None]
  - DIZZINESS [None]
